FAERS Safety Report 19231594 (Version 1)
Quarter: 2021Q2

REPORT INFORMATION
  Report Type: Spontaneous
  Country: CA (occurrence: CA)
  Receive Date: 20210507
  Receipt Date: 20210507
  Transmission Date: 20210717
  Serious: Yes (Hospitalization)
  Sender: FDA-Public Use
  Company Number: CA-ASTRAZENECA-2021A382742

PATIENT
  Age: 71 Year
  Sex: Male

DRUGS (11)
  1. INSULIN GLARGINE [Concomitant]
     Active Substance: INSULIN GLARGINE
  2. METOPROLOL. [Concomitant]
     Active Substance: METOPROLOL
  3. PROPRANOLOL [Concomitant]
     Active Substance: PROPRANOLOL HYDROCHLORIDE
  4. METFORMIN [Concomitant]
     Active Substance: METFORMIN HYDROCHLORIDE
  5. FUROSEMIDE. [Concomitant]
     Active Substance: FUROSEMIDE
  6. ATORVASTATIN [Concomitant]
     Active Substance: ATORVASTATIN
  7. CILAZAPRIL [Concomitant]
     Active Substance: CILAZAPRIL ANHYDROUS
  8. TRAJENTA [Concomitant]
     Active Substance: LINAGLIPTIN
  9. DABIGATRAN [Concomitant]
     Active Substance: DABIGATRAN
  10. FORXIGA [Suspect]
     Active Substance: DAPAGLIFLOZIN
     Dosage: 10 MG, 1 EVERY 1 DAYS
     Route: 048
  11. ZENHALE [Concomitant]
     Active Substance: FORMOTEROL FUMARATE\MOMETASONE FUROATE

REACTIONS (2)
  - Gangrene [Recovering/Resolving]
  - Necrotising fasciitis [Recovering/Resolving]
